FAERS Safety Report 13781232 (Version 1)
Quarter: 2017Q3

REPORT INFORMATION
  Report Type: Spontaneous
  Country: US (occurrence: US)
  Receive Date: 20170721
  Receipt Date: 20170721
  Transmission Date: 20171127
  Serious: Yes (Other)
  Sender: FDA-Public Use
  Company Number: None

PATIENT
  Age: 40 Year
  Sex: Female
  Weight: 58.11 kg

DRUGS (2)
  1. BUPRENORPHINE/NALOXONE 8MG/2MG TABLETS [Suspect]
     Active Substance: BUPRENORPHINE\NALOXONE
     Indication: DRUG DEPENDENCE
     Dosage: DOSE - 2 1/2?DATE OF USE - TOOK FOR A MONTH
  2. BUPRENORPHINE/NALOXONE 8MG/2MG TABLETS [Suspect]
     Active Substance: BUPRENORPHINE\NALOXONE
     Indication: ANALGESIC THERAPY
     Dosage: DOSE - 2 1/2?DATE OF USE - TOOK FOR A MONTH

REACTIONS (2)
  - Rash generalised [None]
  - Rash erythematous [None]

NARRATIVE: CASE EVENT DATE: 20150505
